FAERS Safety Report 8979473 (Version 1)
Quarter: 2012Q4

REPORT INFORMATION
  Report Type: 
  Country: BR (occurrence: BR)
  Receive Date: 20121221
  Receipt Date: 20121221
  Transmission Date: 20130627
  Serious: Yes (Hospitalization)
  Sender: FDA-Public Use
  Company Number: PHHY2012BR113348

PATIENT
  Age: 83 Year
  Sex: Female

DRUGS (9)
  1. FORASEQ [Suspect]
     Indication: DYSPNOEA
     Dosage: 1 DF, daily
  2. FORASEQ [Suspect]
     Dosage: 2 DF (2 to 3 inhalation per day)
  3. AMLODIPINE BESYLATE [Concomitant]
     Indication: HYPERTENSION
     Dosage: 1 DF, daily
     Route: 048
  4. BAMIFIX [Concomitant]
     Dosage: 2 DF (2 inhalation), daily
  5. BAMIFIX [Concomitant]
     Dosage: 600 mg, BID, (2 inhalation), daily
  6. PARACETAMOL [Concomitant]
     Indication: GASTRIC DISORDER
     Dosage: 1 DF, daily
     Route: 048
  7. ATROVENT [Concomitant]
     Indication: DYSPNOEA
  8. PREDNISON [Concomitant]
     Indication: DYSPNOEA
     Dosage: 1 DF, daily
  9. PREDNISON [Concomitant]
     Dosage: 20 mg, UNK
     Route: 048

REACTIONS (8)
  - Memory impairment [Not Recovered/Not Resolved]
  - Asthma [Recovering/Resolving]
  - Amnesia [Recovering/Resolving]
  - Weight decreased [Not Recovered/Not Resolved]
  - Hearing disability [Not Recovered/Not Resolved]
  - Ear pain [Not Recovered/Not Resolved]
  - Chronic obstructive pulmonary disease [Recovering/Resolving]
  - Ear pruritus [Not Recovered/Not Resolved]
